FAERS Safety Report 19500313 (Version 5)
Quarter: 2021Q3

REPORT INFORMATION
  Report Type: Report from Study
  Country: CN (occurrence: CN)
  Receive Date: 20210707
  Receipt Date: 20210826
  Transmission Date: 20211014
  Serious: Yes (Death, Hospitalization)
  Sender: FDA-Public Use
  Company Number: CN-ROCHE-2845042

PATIENT
  Age: 49 Year
  Sex: Female
  Weight: 48 kg

DRUGS (47)
  1. FOLIC ACID. [Concomitant]
     Active Substance: FOLIC ACID
     Dates: start: 20200709
  2. SODIUM PHOSPHATES RECTAL [Concomitant]
     Route: 065
     Dates: start: 20210419, end: 20210420
  3. DEXAMETHASONE SODIUM PHOSPHATE. [Concomitant]
     Active Substance: DEXAMETHASONE SODIUM PHOSPHATE
     Route: 042
     Dates: start: 20210518, end: 20210518
  4. BEVACIZUMAB. [Suspect]
     Active Substance: BEVACIZUMAB
     Indication: NON-SMALL CELL LUNG CANCER STAGE IV
     Dosage: DOSE LAST STUDY DRUG ADMIN PRIOR SAE IS 705 MG ON 18/MAY/2021
     Route: 042
     Dates: start: 20200729
  5. GABAPENTIN. [Concomitant]
     Active Substance: GABAPENTIN
     Route: 065
     Dates: start: 20200901, end: 20210418
  6. PANTOPRAZOLE SODIUM. [Concomitant]
     Active Substance: PANTOPRAZOLE SODIUM
     Dates: start: 20210407, end: 20210407
  7. SORBITOL ENEMA [Concomitant]
     Indication: CONSTIPATION
     Dates: start: 20200730
  8. METOCLOPRAMIDE HYDROCHLORIDE. [Concomitant]
     Active Substance: METOCLOPRAMIDE HYDROCHLORIDE
     Dates: start: 20210603, end: 20210623
  9. TROPISETRON HYDROCHLORIDE [Concomitant]
     Active Substance: TROPISETRON HYDROCHLORIDE
     Dates: start: 20210706, end: 20210706
  10. MOSAPRIDE CITRATE [Concomitant]
     Active Substance: MOSAPRIDE CITRATE
     Dates: start: 20210630
  11. CARBOPLATIN. [Suspect]
     Active Substance: CARBOPLATIN
     Indication: NON-SMALL CELL LUNG CANCER STAGE IV
     Dosage: LAST STUDY DRUG DOSE ADMIN PRIOR TO SAE: 550 MG ON 05/NOV/2020
     Route: 042
     Dates: start: 20200729
  12. ONDANSETRON HYDROCHLORIDE. [Concomitant]
     Active Substance: ONDANSETRON HYDROCHLORIDE
     Dates: start: 20210408, end: 20210412
  13. PALONOSETRON HYDROCHLORIDE. [Concomitant]
     Active Substance: PALONOSETRON HYDROCHLORIDE
     Dates: start: 20210427, end: 20210427
  14. DEXAMETHASONE SODIUM PHOSPHATE. [Concomitant]
     Active Substance: DEXAMETHASONE SODIUM PHOSPHATE
     Route: 042
     Dates: start: 20210427, end: 20210427
  15. MOSAPRIDE CITRATE [Concomitant]
     Active Substance: MOSAPRIDE CITRATE
     Dates: start: 20210623, end: 20210625
  16. OXYCONTIN [Suspect]
     Active Substance: OXYCODONE HYDROCHLORIDE
     Indication: PRODUCT USED FOR UNKNOWN INDICATION
     Route: 065
  17. MEGESTROL ACETATE. [Concomitant]
     Active Substance: MEGESTROL ACETATE
     Dates: start: 20210518
  18. LANSOPRAZOLE. [Concomitant]
     Active Substance: LANSOPRAZOLE
     Dates: start: 20210603, end: 20210623
  19. OLANZAPINE. [Concomitant]
     Active Substance: OLANZAPINE
     Dates: start: 20210623, end: 20210625
  20. SODIUM PHOSPHATES RECTAL [Concomitant]
  21. VITAMIN C [Concomitant]
     Active Substance: ASCORBIC ACID
     Dates: start: 20210629, end: 20210630
  22. PEMETREXED. [Suspect]
     Active Substance: PEMETREXED
     Indication: NON-SMALL CELL LUNG CANCER STAGE IV
     Dosage: START DATE OF MOST RECENT DOSE OF STUDY DRUG PRIOR TO SAE: 18?MAY?2021 DOSE 700 MG
     Route: 042
     Dates: start: 20200729
  23. DEXAMETHASONE SODIUM PHOSPHATE. [Concomitant]
     Active Substance: DEXAMETHASONE SODIUM PHOSPHATE
     Route: 042
     Dates: start: 20210407, end: 20210407
  24. PANTOPRAZOLE SODIUM. [Concomitant]
     Active Substance: PANTOPRAZOLE SODIUM
     Dates: start: 20210427, end: 20210427
  25. SODIUM PHOSPHATES RECTAL [Concomitant]
     Dates: start: 20210629
  26. MOSAPRIDE [Concomitant]
     Active Substance: MOSAPRIDE
  27. VITAMIN B6 [Concomitant]
     Active Substance: PYRIDOXINE HYDROCHLORIDE
     Dates: start: 20210629, end: 20210630
  28. POTASSIUM CHLORIDE. [Concomitant]
     Active Substance: POTASSIUM CHLORIDE
     Dates: start: 20210629, end: 20210701
  29. CELEBREX [Concomitant]
     Active Substance: CELECOXIB
     Indication: ANALGESIC THERAPY
     Dates: start: 202006
  30. LACTULOSE. [Concomitant]
     Active Substance: LACTULOSE
     Dates: start: 20210623, end: 20210630
  31. METOCLOPRAMIDE HYDROCHLORIDE. [Concomitant]
     Active Substance: METOCLOPRAMIDE HYDROCHLORIDE
     Dates: start: 20210629, end: 20210629
  32. TROPISETRON HYDROCHLORIDE [Concomitant]
     Active Substance: TROPISETRON HYDROCHLORIDE
     Dates: start: 20210603, end: 20210623
  33. PLACEBO [Suspect]
     Active Substance: UNSPECIFIED INGREDIENT
     Indication: NON-SMALL CELL LUNG CANCER STAGE IV
     Dosage: LAST DOSE OF STUDY DRUG ADMIN PRIOR SAE RECEIVED ON 18/MAY/2021.
     Route: 041
     Dates: start: 20200729
  34. OXYCODONE HYDROCHLORIDE. [Concomitant]
     Active Substance: OXYCODONE HYDROCHLORIDE
     Indication: ANALGESIC THERAPY
     Dates: start: 20200715
  35. PREGABALIN. [Concomitant]
     Active Substance: PREGABALIN
     Dates: start: 20210418
  36. OMEPRAZOLE SODIUM [Concomitant]
     Active Substance: OMEPRAZOLE SODIUM
     Dates: start: 20210518, end: 20210518
  37. LACTULOSE. [Concomitant]
     Active Substance: LACTULOSE
     Indication: CONSTIPATION
     Dates: start: 20210408, end: 20210414
  38. OLANZAPINE. [Concomitant]
     Active Substance: OLANZAPINE
     Dates: start: 20210706, end: 20210706
  39. RHUBARB COMPOUND [Concomitant]
     Dates: start: 20210701, end: 20210701
  40. COMPOUND AMINO ACID INJECTION (18AA?II) [Concomitant]
     Active Substance: AMINO ACIDS, SOURCE UNSPECIFIED
     Dates: start: 20210629, end: 20210630
  41. PALONOSETRON HYDROCHLORIDE. [Concomitant]
     Active Substance: PALONOSETRON HYDROCHLORIDE
     Route: 065
     Dates: start: 20210407, end: 20210407
  42. OXYCODONE HYDROCHLORIDE. [Concomitant]
     Active Substance: OXYCODONE HYDROCHLORIDE
     Indication: PAIN
     Dates: start: 20210428
  43. PALONOSETRON HYDROCHLORIDE. [Concomitant]
     Active Substance: PALONOSETRON HYDROCHLORIDE
     Dates: start: 20210518, end: 20210518
  44. TROPISETRON HYDROCHLORIDE [Concomitant]
     Active Substance: TROPISETRON HYDROCHLORIDE
     Dates: start: 20210702, end: 20210703
  45. MOXIBUSTION [Concomitant]
     Dates: start: 20210630, end: 20210705
  46. MAGNOLIA BARK [Concomitant]
     Dosage: EXHAUST PARTICLES
     Dates: start: 20210705, end: 20210706
  47. STRUCTOLIPID [Concomitant]
     Active Substance: EGG PHOSPHOLIPIDS\GLYCERIN\SOYBEAN OIL
     Dates: start: 20210629, end: 20210630

REACTIONS (1)
  - Intestinal obstruction [Recovered/Resolved]

NARRATIVE: CASE EVENT DATE: 20210603
